FAERS Safety Report 7605536-8 (Version None)
Quarter: 2011Q3

REPORT INFORMATION
  Report Type: 
  Country: None (occurrence: None)
  Receive Date: 20110705
  Receipt Date: 20110620
  Transmission Date: 20111222
  Serious: Yes (Hospitalization, Other)
  Sender: FDA-Public Use
  Company Number: 2011AP000987

PATIENT
  Age: 25 Year
  Sex: Female

DRUGS (2)
  1. SERTRALINE HYDROCHLORIDE [Suspect]
     Indication: AFFECTIVE DISORDER
     Dosage: 50 MG; PO
     Route: 048
     Dates: start: 20101222, end: 20110329
  2. SEROQUEL [Suspect]
     Indication: AFFECTIVE DISORDER
     Dosage: 50 MG; PO
     Route: 048

REACTIONS (4)
  - ECTOPIC PREGNANCY [None]
  - STILLBIRTH [None]
  - ABDOMINAL PAIN LOWER [None]
  - MATERNAL EXPOSURE DURING PREGNANCY [None]
